FAERS Safety Report 25407266 (Version 1)
Quarter: 2025Q2

REPORT INFORMATION
  Report Type: Report from Study
  Country: KR (occurrence: KR)
  Receive Date: 20250606
  Receipt Date: 20250606
  Transmission Date: 20250717
  Serious: Yes (Hospitalization)
  Sender: PFIZER
  Company Number: KR-PFIZER INC-PV202500066767

PATIENT
  Age: 80 Year
  Sex: Male
  Weight: 59.2 kg

DRUGS (15)
  1. VINCRISTINE SULFATE [Suspect]
     Active Substance: VINCRISTINE SULFATE
     Indication: Diffuse large B-cell lymphoma
     Dosage: 1.5 MG, EVERY 3 WEEKS
     Route: 042
     Dates: start: 20220120
  2. VINCRISTINE SULFATE [Suspect]
     Active Substance: VINCRISTINE SULFATE
     Dosage: 1 MG, EVERY 3 WEEKS
     Route: 042
     Dates: end: 20220414
  3. MABTHERA [Suspect]
     Active Substance: RITUXIMAB
     Indication: Diffuse large B-cell lymphoma
     Dosage: 663.8 MG, EVERY 3 WEEKS
     Route: 042
     Dates: start: 20220120
  4. MABTHERA [Suspect]
     Active Substance: RITUXIMAB
     Dosage: 622.5 MG, EVERY 3 WEEKS
     Route: 042
     Dates: end: 20220414
  5. CYCLOPHOSPHAMIDE [Suspect]
     Active Substance: CYCLOPHOSPHAMIDE
     Indication: Diffuse large B-cell lymphoma
     Dosage: 1062 MG, EVERY 3 WEEKS
     Route: 042
     Dates: start: 20220120
  6. CYCLOPHOSPHAMIDE [Suspect]
     Active Substance: CYCLOPHOSPHAMIDE
     Dosage: 446 MG, EVERY 3 WEEKS
     Route: 042
     Dates: end: 20220414
  7. DOXORUBICIN [Suspect]
     Active Substance: DOXORUBICIN
     Indication: Diffuse large B-cell lymphoma
     Dosage: 70.8 MG, EVERY 3 WEEKS
     Route: 042
     Dates: start: 20220120
  8. DOXORUBICIN [Suspect]
     Active Substance: DOXORUBICIN
     Route: 042
     Dates: end: 20220414
  9. PREDNISONE [Suspect]
     Active Substance: PREDNISONE
     Indication: Diffuse large B-cell lymphoma
     Route: 048
     Dates: start: 20220120, end: 20220414
  10. INVESTIGATIONAL PRODUCT [Suspect]
     Active Substance: INVESTIGATIONAL PRODUCT
     Indication: Diffuse large B-cell lymphoma
     Dosage: TAFASITAMAB/PLACEBO, WEEKLY
     Route: 042
     Dates: start: 20220120, end: 20220414
  11. INVESTIGATIONAL PRODUCT [Suspect]
     Active Substance: INVESTIGATIONAL PRODUCT
     Indication: Diffuse large B-cell lymphoma
     Dosage: LENALIDOMIDE/PLACEBO, DAILY
     Route: 048
     Dates: start: 20220120, end: 20220414
  12. ACERTIL ARGININE [Concomitant]
     Dates: start: 2010, end: 20220415
  13. NEBIVOLOL HYDROCHLORIDE [Concomitant]
     Active Substance: NEBIVOLOL HYDROCHLORIDE
     Dates: start: 2010, end: 20220415
  14. NORVASC [Concomitant]
     Active Substance: AMLODIPINE BESYLATE
     Dates: start: 2010, end: 20220415
  15. XARELTO [Concomitant]
     Active Substance: RIVAROXABAN
     Dates: start: 2010, end: 20220415

REACTIONS (2)
  - Pneumocystis jirovecii pneumonia [Recovered/Resolved]
  - Coronavirus infection [Recovered/Resolved]

NARRATIVE: CASE EVENT DATE: 20220414
